FAERS Safety Report 4736412-6 (Version None)
Quarter: 2005Q3

REPORT INFORMATION
  Report Type: 
  Country: None (occurrence: None)
  Receive Date: 20050802
  Receipt Date: 20050715
  Transmission Date: 20060218
  Serious: Yes (Other)
  Sender: FDA-Public Use
  Company Number: ACO_0141_2005

PATIENT
  Age: 56 Year
  Sex: Male

DRUGS (1)
  1. TERNELIN [Suspect]
     Dosage: DF

REACTIONS (3)
  - CHEST PAIN [None]
  - HYPOAESTHESIA [None]
  - PERIPHERAL COLDNESS [None]
